FAERS Safety Report 23400661 (Version 3)
Quarter: 2024Q1

REPORT INFORMATION
  Report Type: Spontaneous
  Country: CY (occurrence: CY)
  Receive Date: 20240115
  Receipt Date: 20240316
  Transmission Date: 20240410
  Serious: Yes (Death, Hospitalization)
  Sender: FDA-Public Use
  Company Number: CY-BoehringerIngelheim-2024-BI-002045

PATIENT
  Age: 70 Year
  Sex: Male

DRUGS (2)
  1. PRAXBIND [Suspect]
     Active Substance: IDARUCIZUMAB
     Indication: Haemoptysis
     Dosage: 5GR
     Dates: start: 20231221, end: 20231221
  2. PRAXBIND [Suspect]
     Active Substance: IDARUCIZUMAB
     Indication: Pulmonary haemorrhage

REACTIONS (4)
  - Shock haemorrhagic [Fatal]
  - Hypovolaemic shock [Fatal]
  - Sepsis [Fatal]
  - Pneumonia [Fatal]

NARRATIVE: CASE EVENT DATE: 20231221
